FAERS Safety Report 9355807 (Version 1)
Quarter: 2013Q2

REPORT INFORMATION
  Report Type: Spontaneous
  Country: US (occurrence: US)
  Receive Date: 20130619
  Receipt Date: 20130619
  Transmission Date: 20140414
  Serious: Yes (Other)
  Sender: FDA-Public Use
  Company Number: PHHY2013US060893

PATIENT
  Sex: Female

DRUGS (3)
  1. TACROLIMUS [Suspect]
     Indication: LIVER TRANSPLANT
     Dosage: 0.2 MG/KG, PER DAY
  2. TACROLIMUS [Suspect]
     Dosage: 0.13 MG/KG, PER DAY
  3. PREDNISONE [Concomitant]

REACTIONS (9)
  - Food allergy [Recovered/Resolved]
  - Gastroenteritis eosinophilic [Recovered/Resolved]
  - Failure to thrive [Recovered/Resolved]
  - Dermatitis atopic [Recovered/Resolved]
  - Nephropathy toxic [Unknown]
  - Food aversion [Recovered/Resolved]
  - Abdominal pain [Recovered/Resolved]
  - Nausea [Recovered/Resolved]
  - Vomiting [Recovered/Resolved]
